FAERS Safety Report 8840399 (Version 1)
Quarter: 2012Q4

REPORT INFORMATION
  Report Type: 
  Country: US (occurrence: US)
  Receive Date: 20121015
  Receipt Date: 20121015
  Transmission Date: 20130627
  Serious: Yes (Hospitalization, Other)
  Sender: FDA-Public Use
  Company Number: US-ROCHE-1131728

PATIENT
  Sex: Female
  Weight: 26.9 kg

DRUGS (4)
  1. NUTROPIN AQ [Suspect]
     Indication: TURNER^S SYNDROME
     Route: 058
     Dates: start: 19991022
  2. CLINDAMYCIN [Concomitant]
  3. ZANTAC [Concomitant]
  4. AUGMENTIN [Concomitant]

REACTIONS (6)
  - Respiratory tract congestion [Unknown]
  - Cough [Unknown]
  - Lung abscess [Unknown]
  - Hypertension [Recovered/Resolved]
  - Empyema [Unknown]
  - Otitis media [Unknown]
